FAERS Safety Report 9009365 (Version 2)
Quarter: 2013Q1

REPORT INFORMATION
  Report Type: Spontaneous
  Country: ES (occurrence: ES)
  Receive Date: 20130111
  Receipt Date: 20130208
  Transmission Date: 20140127
  Serious: Yes (Death, Hospitalization)
  Sender: FDA-Public Use
  Company Number: ES-SANOFI-AVENTIS-2013SA001439

PATIENT
  Age: 70 Year
  Sex: Female

DRUGS (5)
  1. SEGURIL [Suspect]
     Indication: ASCITES
     Route: 048
     Dates: start: 201204, end: 20120605
  2. SEGURIL [Interacting]
     Indication: ASCITES
     Route: 048
     Dates: start: 20120606, end: 20120709
  3. ALDACTONE [Interacting]
     Indication: ASCITES
     Route: 048
     Dates: start: 201204, end: 20120605
  4. ALDACTONE [Interacting]
     Indication: ASCITES
     Route: 048
     Dates: start: 20120606, end: 20120709
  5. PARACETAMOL [Concomitant]
     Indication: BACK PAIN
     Route: 048
     Dates: start: 201203

REACTIONS (2)
  - Hepatic encephalopathy [Fatal]
  - Drug interaction [Unknown]
